FAERS Safety Report 8980135 (Version 4)
Quarter: 2013Q1

REPORT INFORMATION
  Report Type: Spontaneous
  Country: JP (occurrence: JP)
  Receive Date: 20121221
  Receipt Date: 20130115
  Transmission Date: 20140127
  Serious: Yes (Hospitalization)
  Sender: FDA-Public Use
  Company Number: PHHY2012JP115488

PATIENT
  Age: 50 Year
  Sex: Male
  Weight: 175 kg

DRUGS (2)
  1. TEGRETOL [Suspect]
     Indication: EPILEPSY
     Dosage: 1 DF, BID (ONE TABLET IN THE MORNING AND ONE TABLET IN THE EVENING)
     Route: 048
     Dates: start: 20120525, end: 20120817
  2. HYDANTOL F [Concomitant]
     Indication: EPILEPSY
     Dosage: 6 DF, UNK
     Route: 048

REACTIONS (9)
  - Tubulointerstitial nephritis [Recovering/Resolving]
  - Drug reaction with eosinophilia and systemic symptoms [Recovering/Resolving]
  - Drug eruption [Recovering/Resolving]
  - Rash [Recovering/Resolving]
  - Pyrexia [Recovering/Resolving]
  - Oropharyngeal pain [Recovering/Resolving]
  - Face oedema [Recovering/Resolving]
  - Scab [Recovering/Resolving]
  - Cyst [Recovering/Resolving]
